FAERS Safety Report 8366423-3 (Version None)
Quarter: 2012Q2

REPORT INFORMATION
  Report Type: 
  Country: None (occurrence: None)
  Receive Date: 20120517
  Receipt Date: 20120508
  Transmission Date: 20120825
  Serious: Yes (Hospitalization)
  Sender: FDA-Public Use
  Company Number: JP-PFIZER INC-2012116522

PATIENT
  Age: 78 Year
  Sex: Female

DRUGS (7)
  1. NOVORAPID [Concomitant]
     Dosage: UNK
     Dates: end: 20110523
  2. ATELEC [Concomitant]
     Dosage: UNK
  3. PRAVASTATIN SODIUM [Concomitant]
     Dosage: UNK
  4. DEPAS [Concomitant]
     Dosage: UNK
  5. MIGLITOL [Suspect]
     Indication: TYPE 2 DIABETES MELLITUS
     Dosage: 100 MG, DAILY
     Route: 048
     Dates: start: 20100928, end: 20101028
  6. MIGLITOL [Suspect]
     Dosage: 150 MG, DAILY
     Route: 048
     Dates: start: 20101029, end: 20110523
  7. METFORMIN HCL [Concomitant]
     Dosage: UNK
     Dates: end: 20110523

REACTIONS (2)
  - ROAD TRAFFIC ACCIDENT [None]
  - SUBARACHNOID HAEMORRHAGE [None]
